FAERS Safety Report 5805904-0 (Version None)
Quarter: 2008Q3

REPORT INFORMATION
  Report Type: 
  Country: None (occurrence: None)
  Receive Date: 20080710
  Receipt Date: 20080701
  Transmission Date: 20090109
  Serious: Yes (Hospitalization)
  Sender: FDA-Public Use
  Company Number: US-JNJFOC-20080700545

PATIENT
  Age: 29 Year
  Sex: Male

DRUGS (2)
  1. REMICADE [Suspect]
     Dosage: 26 INFUSIONS
     Route: 042
  2. REMICADE [Suspect]
     Indication: CROHN'S DISEASE
     Dosage: 26 INFUSIONS
     Route: 042

REACTIONS (5)
  - ABSCESS INTESTINAL [None]
  - ANAEMIA [None]
  - CROHN'S DISEASE [None]
  - LEUKOCYTOSIS [None]
  - SMALL INTESTINAL OBSTRUCTION [None]
